FAERS Safety Report 7757275-0 (Version None)
Quarter: 2011Q3

REPORT INFORMATION
  Report Type: 
  Country: None (occurrence: None)
  Receive Date: 20110916
  Receipt Date: 20110914
  Transmission Date: 20111222
  Serious: Yes (Other)
  Sender: FDA-Public Use
  Company Number: DE-AMGEN-DEUSP2011037351

PATIENT
  Age: 74 Year
  Sex: Female

DRUGS (1)
  1. VECTIBIX [Suspect]
     Indication: COLON CANCER METASTATIC
     Dosage: 400 MG, Q2WK
     Route: 042
     Dates: start: 20110113, end: 20110512

REACTIONS (4)
  - CONJUNCTIVAL ABRASION [None]
  - HERPES SIMPLEX OPHTHALMIC [None]
  - CONJUNCTIVITIS [None]
  - RENAL CANCER RECURRENT [None]
